FAERS Safety Report 24844946 (Version 1)
Quarter: 2025Q1

REPORT INFORMATION
  Report Type: Report from Study
  Country: ES (occurrence: ES)
  Receive Date: 20250115
  Receipt Date: 20250115
  Transmission Date: 20250408
  Serious: Yes (Death, Life-Threatening, Other)
  Sender: BAXTER
  Company Number: None

PATIENT
  Age: 45 Year
  Sex: Female

DRUGS (8)
  1. CYCLOPHOSPHAMIDE [Suspect]
     Active Substance: CYCLOPHOSPHAMIDE
     Indication: Plasma cell leukaemia
     Route: 065
     Dates: start: 20230531
  2. DOXORUBICIN [Suspect]
     Active Substance: DOXORUBICIN
     Indication: Plasma cell leukaemia
     Route: 041
     Dates: start: 20230531
  3. MEROPENEM [Suspect]
     Active Substance: MEROPENEM
     Indication: Enterocolitis
     Route: 041
     Dates: start: 20230608
  4. ISAVUCONAZOLE [Suspect]
     Active Substance: ISAVUCONAZOLE
     Indication: Fungal infection
     Route: 065
     Dates: start: 20230616
  5. ETOPOSIDE [Suspect]
     Active Substance: ETOPOSIDE
     Indication: Plasma cell leukaemia
     Route: 065
     Dates: start: 20230531
  6. CEFTRIAXONE [Suspect]
     Active Substance: CEFTRIAXONE
     Indication: Urinary tract infection
     Route: 041
     Dates: start: 20230706
  7. VANCOMYCIN [Suspect]
     Active Substance: VANCOMYCIN
     Indication: Enterocolitis
     Route: 041
     Dates: start: 20230608
  8. PREDNISONE [Concomitant]
     Active Substance: PREDNISONE
     Route: 065
     Dates: start: 20230131

REACTIONS (3)
  - Drug-induced liver injury [Fatal]
  - Febrile neutropenia [Fatal]
  - Toxic skin eruption [Fatal]

NARRATIVE: CASE EVENT DATE: 20230602
